FAERS Safety Report 24367318 (Version 1)
Quarter: 2024Q3

REPORT INFORMATION
  Report Type: Spontaneous
  Country: US (occurrence: US)
  Receive Date: 20240926
  Receipt Date: 20240926
  Transmission Date: 20241017
  Serious: Yes (Hospitalization, Other)
  Sender: GLAXOSMITHKLINE
  Company Number: US-GSKCCFUS-Case-02107677_AE-116353

PATIENT

DRUGS (2)
  1. BENLYSTA [Suspect]
     Active Substance: BELIMUMAB
     Indication: Systemic lupus erythematosus
     Dosage: UNK
     Route: 043
  2. PLAQUENIL [Suspect]
     Active Substance: HYDROXYCHLOROQUINE SULFATE
     Indication: Systemic lupus erythematosus
     Dosage: UNK
     Route: 048
     Dates: start: 2017

REACTIONS (17)
  - Hospitalisation [Unknown]
  - Abdominal hernia [Unknown]
  - Systemic lupus erythematosus [Unknown]
  - Vomiting [Unknown]
  - Chest discomfort [Unknown]
  - Dyspnoea [Unknown]
  - Oxygen saturation decreased [Unknown]
  - Rash erythematous [Unknown]
  - Pain [Unknown]
  - Arthralgia [Unknown]
  - Butterfly rash [Unknown]
  - Fatigue [Unknown]
  - Bronchial secretion retention [Unknown]
  - Scar [Unknown]
  - Gastrointestinal disorder [Unknown]
  - Retinal disorder [Unknown]
  - Visual impairment [Unknown]

NARRATIVE: CASE EVENT DATE: 20240401
